FAERS Safety Report 5704073-5 (Version None)
Quarter: 2008Q2

REPORT INFORMATION
  Report Type: 
  Country: None (occurrence: None)
  Receive Date: 20080414
  Receipt Date: 20080410
  Transmission Date: 20081010
  Serious: Yes (Other)
  Sender: FDA-Public Use
  Company Number: CH-BRISTOL-MYERS SQUIBB COMPANY-14147086

PATIENT
  Age: 47 Year
  Sex: Male

DRUGS (5)
  1. VIDEX [Suspect]
     Dosage: CHEWABLE;STRENGTH=200MG
     Route: 048
     Dates: start: 20060301
  2. REYATAZ [Suspect]
     Dosage: STRENGTH;170.84MG
     Route: 048
     Dates: start: 20060301
  3. TENOFOVIR DISOPROXIL FUMARATE [Suspect]
     Route: 048
     Dates: start: 20060301
  4. METHADONE HCL [Suspect]
     Route: 048
     Dates: start: 20020301
  5. NORVIR [Concomitant]
     Dosage: CAPSULES; STRENGTH=100MG
     Route: 048
     Dates: start: 20060301

REACTIONS (1)
  - GYNAECOMASTIA [None]
